FAERS Safety Report 7123731-1 (Version None)
Quarter: 2010Q4

REPORT INFORMATION
  Report Type: 
  Country: None (occurrence: None)
  Receive Date: 20101125
  Receipt Date: 20101112
  Transmission Date: 20110411
  Serious: Yes (Other)
  Sender: FDA-Public Use
  Company Number: PHHY2010BR76740

PATIENT
  Sex: Female

DRUGS (1)
  1. EXELON [Suspect]
     Indication: DEMENTIA
     Dosage: UNK
     Route: 062

REACTIONS (5)
  - DEPRESSION [None]
  - EATING DISORDER [None]
  - HALLUCINATION [None]
  - INCOHERENT [None]
  - PSYCHIATRIC SYMPTOM [None]
